FAERS Safety Report 7430870-4 (Version None)
Quarter: 2011Q2

REPORT INFORMATION
  Report Type: 
  Country: None (occurrence: None)
  Receive Date: 20110419
  Receipt Date: 20110419
  Transmission Date: 20111010
  Serious: Yes (Hospitalization)
  Sender: FDA-Public Use
  Company Number: None

PATIENT
  Age: 62 Year
  Sex: Male

DRUGS (9)
  1. PROCRIT [Suspect]
     Indication: NEPHROGENIC ANAEMIA
     Dosage: 40,000 UNITS QW SC
     Route: 058
     Dates: start: 20110119, end: 20110308
  2. CLONIDINE [Concomitant]
  3. LABETALOL [Concomitant]
  4. ACYCLOVIR [Concomitant]
  5. LIPITOR [Concomitant]
  6. TACROLIMUS [Concomitant]
  7. PRENATAL MVI [Concomitant]
  8. PREDNISONE [Concomitant]
  9. OMEPRAZOLE [Concomitant]

REACTIONS (1)
  - THROMBOSIS [None]
